FAERS Safety Report 6418407-X (Version None)
Quarter: 2009Q4

REPORT INFORMATION
  Report Type: 
  Country: None (occurrence: None)
  Receive Date: 20091028
  Receipt Date: 20081029
  Transmission Date: 20100525
  Serious: Yes (Other)
  Sender: FDA-Public Use
  Company Number: PHHY2008US25719

PATIENT
  Sex: Female

DRUGS (2)
  1. METOPROLOL [Suspect]
     Indication: HYPERTENSION
  2. LISINOPRIL [Concomitant]
     Dosage: UNK

REACTIONS (3)
  - BACTERIAL DISEASE CARRIER [None]
  - BLOOD CHOLESTEROL INCREASED [None]
  - INFLAMMATION [None]
